FAERS Safety Report 26112797 (Version 1)
Quarter: 2025Q4

REPORT INFORMATION
  Report Type: Spontaneous
  Country: US (occurrence: US)
  Receive Date: 20251202
  Receipt Date: 20251202
  Transmission Date: 20260118
  Serious: No
  Sender: SANOFI AVENTIS
  Company Number: US-SA-2025SA356717

PATIENT
  Age: 57 Year
  Sex: Male

DRUGS (3)
  1. DUPIXENT [Suspect]
     Active Substance: DUPILUMAB
     Dosage: 600 MG, 1X
     Route: 058
     Dates: start: 20240101, end: 20240101
  2. DUPIXENT [Suspect]
     Active Substance: DUPILUMAB
     Dosage: 300 MG, QOW
     Route: 058
     Dates: start: 20240115
  3. DUPIXENT [Suspect]
     Active Substance: DUPILUMAB
     Dosage: 200 MG, QOW
     Route: 058
     Dates: end: 202511

REACTIONS (5)
  - Myalgia [Not Recovered/Not Resolved]
  - Nasopharyngitis [Recovered/Resolved]
  - Nasal congestion [Recovered/Resolved]
  - Fatigue [Recovered/Resolved]
  - Aphonia [Recovered/Resolved]

NARRATIVE: CASE EVENT DATE: 20250101
